FAERS Safety Report 9099790 (Version 1)
Quarter: 2013Q1

REPORT INFORMATION
  Report Type: Spontaneous
  Country: FR (occurrence: FR)
  Receive Date: 20130214
  Receipt Date: 20130214
  Transmission Date: 20140127
  Serious: No
  Sender: FDA-Public Use
  Company Number: FR-ROCHE-1190934

PATIENT
  Age: 13 Year
  Sex: Male
  Weight: 50 kg

DRUGS (2)
  1. TAMIFLU [Suspect]
     Indication: INFLUENZA
     Route: 065
  2. VENTOLINE [Concomitant]
     Route: 065
     Dates: start: 20130211

REACTIONS (2)
  - Medication error [Unknown]
  - No adverse event [Unknown]
